FAERS Safety Report 22206869 (Version 4)
Quarter: 2023Q2

REPORT INFORMATION
  Report Type: Spontaneous
  Country: US (occurrence: US)
  Receive Date: 20230413
  Receipt Date: 20230629
  Transmission Date: 20230722
  Serious: No
  Sender: FDA-Public Use
  Company Number: US-PFIZER INC-202300141908

PATIENT

DRUGS (1)
  1. BICILLIN L-A [Suspect]
     Active Substance: PENICILLIN G BENZATHINE
     Indication: Infection
     Dosage: UNK, (2MILLION 400 THOUSAND UNIT PER 4 MILLILITER)
     Route: 030

REACTIONS (1)
  - Device breakage [Unknown]
